FAERS Safety Report 19429823 (Version 1)
Quarter: 2021Q2

REPORT INFORMATION
  Report Type: Spontaneous
  Country: CN (occurrence: CN)
  Receive Date: 20210617
  Receipt Date: 20210617
  Transmission Date: 20210717
  Serious: Yes (Disabling)
  Sender: FDA-Public Use
  Company Number: NVSC2021CN133834

PATIENT
  Age: 88 Year
  Sex: Male
  Weight: 63 kg

DRUGS (20)
  1. FUROSEMIDE. [Suspect]
     Active Substance: FUROSEMIDE
     Indication: POLYURIA
  2. PAN LI SU [Suspect]
     Active Substance: PANTOPRAZOLE SODIUM
     Indication: PROPHYLAXIS
  3. PLETAAL [Concomitant]
     Active Substance: CILOSTAZOL
     Indication: ANTIPLATELET THERAPY
  4. FUROSEMIDE. [Suspect]
     Active Substance: FUROSEMIDE
     Indication: ARTERIOSCLEROSIS CORONARY ARTERY
     Dosage: 20 MG, QD
     Route: 048
     Dates: start: 20200911, end: 20200913
  5. PAN LI SU [Suspect]
     Active Substance: PANTOPRAZOLE SODIUM
     Indication: COMPLICATION ASSOCIATED WITH DEVICE
     Dosage: 40 MG, QD(ENTERIC COATED CAPSULE)
     Route: 048
     Dates: start: 20200909, end: 20200915
  6. SPIRONOLACTONE. [Suspect]
     Active Substance: SPIRONOLACTONE
     Indication: CARDIAC DISORDER
  7. ROSUVASTATIN CALCIUM. [Suspect]
     Active Substance: ROSUVASTATIN CALCIUM
     Indication: COMPLICATION ASSOCIATED WITH DEVICE
     Dosage: 10 MG, QOD
     Route: 048
     Dates: start: 20200909, end: 20200914
  8. SPIRONOLACTONE. [Suspect]
     Active Substance: SPIRONOLACTONE
     Indication: ARTERIOSCLEROSIS CORONARY ARTERY
     Dosage: 40 MG, QD
     Route: 048
     Dates: start: 20200911, end: 20200913
  9. BRILINTA [Concomitant]
     Active Substance: TICAGRELOR
     Indication: COMPLICATION ASSOCIATED WITH DEVICE
     Dosage: 90 MG, BID
     Route: 048
     Dates: start: 20200909, end: 20200922
  10. BETALOC [Concomitant]
     Active Substance: METOPROLOL
     Indication: HEART RATE DECREASED
  11. GLUCOPHAGE [Concomitant]
     Active Substance: METFORMIN HYDROCHLORIDE
     Indication: TYPE 2 DIABETES MELLITUS
     Dosage: 0.5 G, BID
     Route: 048
     Dates: start: 20200909, end: 20200914
  12. FUROSEMIDE. [Suspect]
     Active Substance: FUROSEMIDE
     Indication: CARDIAC DISORDER
  13. SPIRONOLACTONE. [Suspect]
     Active Substance: SPIRONOLACTONE
     Indication: POLYURIA
  14. BRILINTA [Concomitant]
     Active Substance: TICAGRELOR
     Indication: ANTIPLATELET THERAPY
  15. FUROSEMIDE. [Suspect]
     Active Substance: FUROSEMIDE
     Indication: HYPOVOLAEMIA
  16. SPIRONOLACTONE. [Suspect]
     Active Substance: SPIRONOLACTONE
     Indication: HYPOVOLAEMIA
  17. BETALOC [Concomitant]
     Active Substance: METOPROLOL
     Indication: HYPERTENSION
     Dosage: 47.5 MG, QD(SUSTAINED RELASE TABLET)
     Route: 048
     Dates: start: 20200909, end: 20200922
  18. ROSUVASTATIN CALCIUM. [Suspect]
     Active Substance: ROSUVASTATIN CALCIUM
     Indication: LIPIDS DECREASED
  19. EXFORGE [Concomitant]
     Active Substance: AMLODIPINE BESYLATE\VALSARTAN
     Indication: HYPERTENSION
     Dosage: 1 DF, QD
     Route: 048
     Dates: start: 20200909, end: 20200922
  20. PLETAAL [Concomitant]
     Active Substance: CILOSTAZOL
     Indication: COMPLICATION ASSOCIATED WITH DEVICE
     Dosage: 50 MG, BID
     Route: 048
     Dates: start: 20200909, end: 20200922

REACTIONS (1)
  - Renal impairment [Recovering/Resolving]

NARRATIVE: CASE EVENT DATE: 20200913
